FAERS Safety Report 17641032 (Version 1)
Quarter: 2020Q2

REPORT INFORMATION
  Report Type: Spontaneous
  Country: US (occurrence: US)
  Receive Date: 20200407
  Receipt Date: 20200407
  Transmission Date: 20200713
  Serious: No
  Sender: FDA-Public Use
  Company Number: US-009507513-2004USA002182

PATIENT
  Age: 57 Year
  Sex: Male

DRUGS (3)
  1. ALBUTEROL. [Concomitant]
     Active Substance: ALBUTEROL
  2. MELOXICAM. [Concomitant]
     Active Substance: MELOXICAM
  3. DULERA [Suspect]
     Active Substance: FORMOTEROL FUMARATE DIHYDRATE\MOMETASONE FUROATE
     Indication: ALPHA-1 ANTITRYPSIN DEFICIENCY
     Dosage: ONE 200/5 MCG 4 PUFFS A DAY
     Dates: start: 2014

REACTIONS (3)
  - Dyspnoea [Recovering/Resolving]
  - Product use in unapproved indication [Unknown]
  - Product dose omission [Unknown]

NARRATIVE: CASE EVENT DATE: 2014
